FAERS Safety Report 14782741 (Version 1)
Quarter: 2018Q2

REPORT INFORMATION
  Report Type: Spontaneous
  Country: US (occurrence: US)
  Receive Date: 20180420
  Receipt Date: 20180420
  Transmission Date: 20180711
  Serious: Yes (Hospitalization, Other)
  Sender: FDA-Public Use
  Company Number: US-IPCA LABORATORIES LIMITED-IPC-2018-US-000787

PATIENT
  Age: 4 Year
  Sex: Female

DRUGS (1)
  1. ONDANSETRON TABLETS, USP [Suspect]
     Active Substance: ONDANSETRON
     Indication: PRODUCT USED FOR UNKNOWN INDICATION
     Dosage: 4 MG, UNK
     Route: 048

REACTIONS (11)
  - Sinus tachycardia [None]
  - Flushing [None]
  - Respiratory depression [Unknown]
  - Balance disorder [None]
  - Wrong patient received medication [Unknown]
  - Depressed level of consciousness [None]
  - Speech disorder [None]
  - Mydriasis [None]
  - Accidental overdose [Unknown]
  - Hypoxia [None]
  - Ataxia [None]
